FAERS Safety Report 9977279 (Version 1)
Quarter: 2014Q1

REPORT INFORMATION
  Report Type: Report from Study
  Country: US (occurrence: US)
  Receive Date: 20140306
  Receipt Date: 20140306
  Transmission Date: 20141002
  Serious: No
  Sender: FDA-Public Use
  Company Number: US-ABBVIE-13P-163-1168677-00

PATIENT
  Age: 56 Year
  Sex: Female
  Weight: 68.1 kg

DRUGS (5)
  1. HUMIRA [Suspect]
     Indication: PSORIASIS
     Route: 058
     Dates: start: 2012
  2. HUMIRA [Suspect]
     Indication: PSORIATIC ARTHROPATHY
  3. ATENOLOL [Concomitant]
     Indication: ARRHYTHMIA
  4. PROGESTERONE [Concomitant]
     Indication: MENOPAUSE
  5. ESTROGEN NOS [Concomitant]
     Indication: MENOPAUSE

REACTIONS (2)
  - Pain [Not Recovered/Not Resolved]
  - Infection [Recovered/Resolved]
